FAERS Safety Report 7205391-4 (Version None)
Quarter: 2010Q4

REPORT INFORMATION
  Report Type: 
  Country: None (occurrence: None)
  Receive Date: 20101231
  Receipt Date: 20101222
  Transmission Date: 20110411
  Serious: Yes (Death, Other)
  Sender: FDA-Public Use
  Company Number: US-PFIZER INC-2010177915

PATIENT
  Sex: Male

DRUGS (8)
  1. GABAPENTIN [Suspect]
     Indication: ANXIETY
     Dosage: 500 MG, 3X/DAY
     Route: 048
     Dates: start: 20100925, end: 20100101
  2. GABAPENTIN [Suspect]
     Indication: PAIN
  3. MIRTAZAPINE [Suspect]
     Indication: ANXIETY
     Dosage: 30 MG, 1X/DAY
     Route: 048
     Dates: start: 20090920
  4. TRAZODONE HYDROCHLORIDE [Suspect]
     Indication: ANXIETY
     Dosage: 50 MG, 1X/DAY
     Route: 048
     Dates: start: 20100925, end: 20101101
  5. BUSPIRONE [Suspect]
     Indication: ANXIETY
     Dosage: 50 MG, 3X/DAY
     Route: 048
     Dates: start: 20090920
  6. VERAPAMIL [Concomitant]
     Indication: HYPERTENSION
     Dosage: 180 MG, 2X/DAY
     Route: 048
  7. ADVIL [Concomitant]
     Dosage: UNK, AS NEEDED
  8. LOTREL [Concomitant]
     Dosage: UNK, AS NEEDED

REACTIONS (6)
  - ABDOMINAL PAIN [None]
  - ABNORMAL BEHAVIOUR [None]
  - CHEST PAIN [None]
  - COMPLETED SUICIDE [None]
  - DIARRHOEA [None]
  - DIVERTICULUM [None]
